FAERS Safety Report 26120836 (Version 2)
Quarter: 2025Q4

REPORT INFORMATION
  Report Type: Report from Study
  Country: US (occurrence: None)
  Receive Date: 20251204
  Receipt Date: 20251211
  Transmission Date: 20260118
  Serious: Yes (Other)
  Sender: UCB
  Company Number: UG-069-000019476

PATIENT
  Age: 73 Year

DRUGS (3)
  1. LEVETIRACETAM [Suspect]
     Active Substance: LEVETIRACETAM
     Indication: Seizure
     Dosage: 1000MG- 1 TAB IN THE AM AND 1.5 TAB AT NIGHT.
  2. LEVETIRACETAM [Suspect]
     Active Substance: LEVETIRACETAM
     Dosage: 1500 MILLIGRAM, 2X/DAY (BID)
  3. VIMPAT [Suspect]
     Active Substance: LACOSAMIDE
     Indication: Seizure
     Dosage: 200 MILLIGRAM, 2X/DAY (BID)

REACTIONS (6)
  - Seizure [Recovered/Resolved]
  - Loss of consciousness [Not Recovered/Not Resolved]
  - Muscular weakness [Unknown]
  - Arthralgia [Unknown]
  - Back pain [Unknown]
  - Off label use [Unknown]
